FAERS Safety Report 8437873-1 (Version None)
Quarter: 2012Q2

REPORT INFORMATION
  Report Type: 
  Country: None (occurrence: None)
  Receive Date: 20120614
  Receipt Date: 20120518
  Transmission Date: 20120825
  Serious: No
  Sender: FDA-Public Use
  Company Number: US-AMGEN-USASP2012031555

PATIENT
  Age: 74 Year
  Sex: Male

DRUGS (4)
  1. CALCIUM WITH VITAMIN D [Concomitant]
     Dosage: UNK
  2. FINASTERIDE [Concomitant]
     Dosage: UNK
  3. ASPIRIN [Concomitant]
     Dosage: UNK
  4. XGEVA [Suspect]
     Indication: PROSTATE CANCER METASTATIC
     Dosage: UNK
     Dates: start: 20120410

REACTIONS (3)
  - JOINT STIFFNESS [None]
  - PARAESTHESIA [None]
  - HYPOAESTHESIA [None]
